FAERS Safety Report 20886282 (Version 7)
Quarter: 2022Q4

REPORT INFORMATION
  Report Type: Report from Study
  Country: US (occurrence: US)
  Receive Date: 20220527
  Receipt Date: 20221122
  Transmission Date: 20230113
  Serious: No
  Sender: FDA-Public Use
  Company Number: US-NOVARTISTESTPH-NVSC2022US122620

PATIENT
  Sex: Male

DRUGS (2)
  1. COSENTYX [Suspect]
     Active Substance: SECUKINUMAB
     Indication: Psoriatic arthropathy
     Dosage: 300 MG, QMO (EVERY FOUR WEEKS)
     Route: 058
  2. COSENTYX [Suspect]
     Active Substance: SECUKINUMAB
     Dosage: 300 MG, QMO
     Route: 058

REACTIONS (8)
  - SARS-CoV-2 test positive [Unknown]
  - Pyrexia [Unknown]
  - Hypersensitivity [Unknown]
  - Skin plaque [Recovering/Resolving]
  - Bronchitis [Unknown]
  - Pain [Unknown]
  - Joint stiffness [Unknown]
  - Drug ineffective [Unknown]
